FAERS Safety Report 12816706 (Version 1)
Quarter: 2016Q4

REPORT INFORMATION
  Report Type: Spontaneous
  Country: US (occurrence: US)
  Receive Date: 20161006
  Receipt Date: 20161006
  Transmission Date: 20170207
  Serious: No
  Sender: FDA-Public Use
  Company Number: US-NOVEN PHARMACEUTICALS, INC.-US2016001567

PATIENT

DRUGS (7)
  1. COMBIPATCH [Suspect]
     Active Substance: ESTRADIOL\NORETHINDRONE ACETATE
     Indication: HOT FLUSH
     Dosage: 50/140 MG, UNKNOWN
     Route: 062
     Dates: start: 2013
  2. PAXIL [Concomitant]
     Active Substance: PAROXETINE HYDROCHLORIDE
     Indication: SERUM SEROTONIN DECREASED
  3. SERZONE [Concomitant]
     Active Substance: NEFAZODONE HYDROCHLORIDE
     Indication: ANXIETY
  4. SIMVASTATIN. [Concomitant]
     Active Substance: SIMVASTATIN
     Indication: BLOOD CHOLESTEROL
  5. PAXIL [Concomitant]
     Active Substance: PAROXETINE HYDROCHLORIDE
     Indication: ANXIETY
  6. LISINOPRIL. [Concomitant]
     Active Substance: LISINOPRIL
     Indication: BLOOD PRESSURE ABNORMAL
  7. SERZONE [Concomitant]
     Active Substance: NEFAZODONE HYDROCHLORIDE
     Indication: SERUM SEROTONIN DECREASED

REACTIONS (2)
  - No adverse event [Unknown]
  - Drug dose omission [Recovered/Resolved]
